FAERS Safety Report 20490387 (Version 1)
Quarter: 2022Q1

REPORT INFORMATION
  Report Type: Spontaneous
  Country: CA (occurrence: None)
  Receive Date: 20220218
  Receipt Date: 20220218
  Transmission Date: 20220423
  Serious: Yes (Other)
  Sender: FDA-Public Use
  Company Number: CA-Fresenius Kabi-FK202201749

PATIENT
  Age: 11 Year
  Sex: Male

DRUGS (2)
  1. PROPOFOL [Suspect]
     Active Substance: PROPOFOL
     Indication: Product used for unknown indication
     Dosage: DOSAGE FORM REPORTED AS NOT SPECIFIED
     Route: 041
  2. ANTIHEMOPHILIC FACTOR, HUMAN RECOMBINANT [Concomitant]
     Active Substance: ANTIHEMOPHILIC FACTOR, HUMAN RECOMBINANT
     Dosage: UNK
     Route: 065

REACTIONS (3)
  - Aggression [Unknown]
  - Gait disturbance [Unknown]
  - Screaming [Unknown]
